FAERS Safety Report 4521885-4 (Version None)
Quarter: 2004Q4

REPORT INFORMATION
  Report Type: 
  Country: None (occurrence: None)
  Receive Date: 20041207
  Receipt Date: 20041207
  Transmission Date: 20050328
  Serious: Yes (Other)
  Sender: FDA-Public Use
  Company Number: None

PATIENT
  Sex: Female
  Weight: 61.2356 kg

DRUGS (7)
  1. VYTORIN [Suspect]
     Indication: HYPERCHOLESTEROLAEMIA
     Dosage: 10/20 DAILY-ORAL
     Route: 048
     Dates: start: 20041103, end: 20041128
  2. CIPRO XL [Concomitant]
  3. ACIPHEX [Concomitant]
  4. PLENDIL [Concomitant]
  5. TOPROL-XL [Concomitant]
  6. BEMCAR [Concomitant]
  7. ALPRAZOLAM [Concomitant]

REACTIONS (1)
  - OEDEMA PERIPHERAL [None]
